FAERS Safety Report 5646299-5 (Version None)
Quarter: 2008Q1

REPORT INFORMATION
  Report Type: 
  Country: None (occurrence: None)
  Receive Date: 20080303
  Receipt Date: 20080129
  Transmission Date: 20080703
  Serious: No
  Sender: FDA-Public Use
  Company Number: US-BAYER-200812929NA

PATIENT
  Age: 27 Year
  Sex: Female
  Weight: 52 kg

DRUGS (5)
  1. MIRENA [Suspect]
     Indication: CONTRACEPTION
     Route: 015
     Dates: start: 20070808
  2. METHADONE HCL [Concomitant]
     Indication: DRUG DEPENDENCE
  3. PROZAC [Concomitant]
     Indication: ANXIETY
  4. KLONOPIN [Concomitant]
     Indication: ANXIETY
  5. TRI-LEVLEN (ETHINYL ESTRADIOL W/LEVONORGESTREL) [Concomitant]
     Indication: ORAL CONTRACEPTION

REACTIONS (9)
  - ABDOMINAL PAIN LOWER [None]
  - IUCD COMPLICATION [None]
  - MENSTRUATION DELAYED [None]
  - NAUSEA [None]
  - PROCEDURAL PAIN [None]
  - VAGINAL DISCHARGE [None]
  - VAGINAL HAEMORRHAGE [None]
  - VOMITING [None]
  - VULVOVAGINAL PRURITUS [None]
